FAERS Safety Report 6913410-5 (Version None)
Quarter: 2010Q3

REPORT INFORMATION
  Report Type: 
  Country: None (occurrence: None)
  Receive Date: 20100809
  Receipt Date: 20100726
  Transmission Date: 20110219
  Serious: Yes (Other)
  Sender: FDA-Public Use
  Company Number: US-ELI_LILLY_AND_COMPANY-US201007007246

PATIENT
  Sex: Female

DRUGS (4)
  1. FORTEO [Suspect]
     Indication: OSTEOPENIA
     Dosage: 20 UG, DAILY (1/D)
  2. ZANTAC [Concomitant]
     Dosage: 300 MG, 2/D
  3. PRILOSEC [Concomitant]
     Dosage: 40 MG, 2/D
  4. SULCRATE [Concomitant]

REACTIONS (3)
  - INJECTION SITE HAEMATOMA [None]
  - MALIGNANT MELANOMA [None]
  - NAUSEA [None]
